FAERS Safety Report 11633309 (Version 1)
Quarter: 2015Q4

REPORT INFORMATION
  Report Type: Report from Study
  Country: US (occurrence: US)
  Receive Date: 20151015
  Receipt Date: 20151015
  Transmission Date: 20160304
  Serious: Yes (Other)
  Sender: FDA-Public Use
  Company Number: US-AMGEN-USASP2015105761

PATIENT
  Age: 51 Year
  Sex: Male

DRUGS (2)
  1. ENBREL [Suspect]
     Active Substance: ETANERCEPT
     Indication: PSORIATIC ARTHROPATHY
  2. ENBREL [Suspect]
     Active Substance: ETANERCEPT
     Indication: PSORIASIS
     Dosage: 50 MG, QWK
     Route: 065
     Dates: start: 2015, end: 2015

REACTIONS (30)
  - Diabetes mellitus [Unknown]
  - Confusional state [Unknown]
  - Crying [Unknown]
  - Dysarthria [Unknown]
  - Multiple sclerosis [Unknown]
  - Spinal pain [Unknown]
  - Paraesthesia [Unknown]
  - Hypoaesthesia [Unknown]
  - Visual impairment [Unknown]
  - Dysuria [Unknown]
  - Sleep disorder [Unknown]
  - Parkinson^s disease [Unknown]
  - Muscular weakness [Unknown]
  - Dizziness [Unknown]
  - Hearing impaired [Unknown]
  - Neck pain [Unknown]
  - Penis disorder [Unknown]
  - Psoriasis [Unknown]
  - Testicular pain [Unknown]
  - Feeling abnormal [Unknown]
  - Neoplasm malignant [Unknown]
  - Tremor [Unknown]
  - Musculoskeletal chest pain [Unknown]
  - Tinnitus [Unknown]
  - Memory impairment [Unknown]
  - Renal disorder [Unknown]
  - Headache [Unknown]
  - Back pain [Unknown]
  - Neuropathy peripheral [Unknown]
  - Musculoskeletal discomfort [Unknown]

NARRATIVE: CASE EVENT DATE: 2015
